FAERS Safety Report 5530075-8 (Version None)
Quarter: 2007Q4

REPORT INFORMATION
  Report Type: 
  Country: None (occurrence: None)
  Receive Date: 20071119
  Receipt Date: 20070919
  Transmission Date: 20080405
  Serious: No
  Sender: FDA-Public Use
  Company Number: TPA2007A01409

PATIENT
  Age: 16 Year
  Sex: Female
  Weight: 68.0396 kg

DRUGS (2)
  1. ROZEREM [Suspect]
     Indication: INITIAL INSOMNIA
     Dosage: 8 MG, ONCE, PER ORAL
     Route: 048
  2. TOPAMAX [Concomitant]

REACTIONS (2)
  - HYPERSENSITIVITY [None]
  - RASH MACULO-PAPULAR [None]
